FAERS Safety Report 4990128-X (Version None)
Quarter: 2006Q2

REPORT INFORMATION
  Report Type: 
  Country: None (occurrence: None)
  Receive Date: 20060501
  Receipt Date: 20060501
  Transmission Date: 20061013
  Serious: Yes (Other)
  Sender: FDA-Public Use
  Company Number: None

PATIENT
  Sex: Male
  Weight: 104.3273 kg

DRUGS (6)
  1. CRESTOR [Suspect]
     Indication: BLOOD CHOLESTEROL INCREASED
     Dosage: 10MG DAILY PO
     Route: 048
     Dates: start: 20060325, end: 20060424
  2. DIOVAN [Concomitant]
  3. NEXIUM [Concomitant]
  4. BYETTA [Concomitant]
  5. PLAVIX [Concomitant]
  6. SOMA [Concomitant]

REACTIONS (2)
  - DERMATITIS [None]
  - HYPERSENSITIVITY [None]
